FAERS Safety Report 12246478 (Version 6)
Quarter: 2017Q3

REPORT INFORMATION
  Report Type: Spontaneous
  Country: US (occurrence: US)
  Receive Date: 20160407
  Receipt Date: 20170714
  Transmission Date: 20171127
  Serious: Yes (Other)
  Sender: FDA-Public Use
  Company Number: US-PFIZER INC-2016175338

PATIENT
  Age: 59 Year
  Sex: Female

DRUGS (1)
  1. XELJANZ [Suspect]
     Active Substance: TOFACITINIB CITRATE
     Indication: RHEUMATOID ARTHRITIS
     Dosage: 5 MG, UNK

REACTIONS (8)
  - Rheumatoid nodule [Unknown]
  - Arthritis [Unknown]
  - Sinusitis [Unknown]
  - Deafness [Unknown]
  - Influenza [Unknown]
  - Blood pressure increased [Unknown]
  - Joint warmth [Unknown]
  - Tympanic membrane perforation [Unknown]
